FAERS Safety Report 17352607 (Version 8)
Quarter: 2020Q3

REPORT INFORMATION
  Report Type: Report from Study
  Country: US (occurrence: US)
  Receive Date: 20200131
  Receipt Date: 20200805
  Transmission Date: 20201102
  Serious: Yes (Hospitalization, Other)
  Sender: FDA-Public Use
  Company Number: NVSC2020US025192

PATIENT
  Age: 55 Year
  Sex: Female

DRUGS (1)
  1. ENTRESTO [Suspect]
     Active Substance: SACUBITRIL\VALSARTAN
     Indication: CARDIAC FAILURE CONGESTIVE
     Dosage: 24 MG, QD
     Route: 048
     Dates: start: 202001

REACTIONS (13)
  - Nasal congestion [Unknown]
  - Dizziness [Recovering/Resolving]
  - Functional gastrointestinal disorder [Recovering/Resolving]
  - Cardiac failure [Recovering/Resolving]
  - Nasopharyngitis [Unknown]
  - Cough [Unknown]
  - Somnolence [Recovering/Resolving]
  - Dyspnoea [Recovering/Resolving]
  - Blood urine present [Unknown]
  - Peripheral swelling [Not Recovered/Not Resolved]
  - Tearfulness [Unknown]
  - Influenza [Recovering/Resolving]
  - Inappropriate schedule of product administration [Unknown]

NARRATIVE: CASE EVENT DATE: 2020
